FAERS Safety Report 7394012-6 (Version None)
Quarter: 2011Q2

REPORT INFORMATION
  Report Type: 
  Country: None (occurrence: None)
  Receive Date: 20110405
  Receipt Date: 20110328
  Transmission Date: 20111010
  Serious: Yes (Life-Threatening, Hospitalization)
  Sender: FDA-Public Use
  Company Number: IL-JNJFOC-20110312788

PATIENT
  Age: 76 Year
  Sex: Female

DRUGS (4)
  1. DEXAMETHASONE [Suspect]
     Indication: PREMEDICATION
     Route: 065
  2. KYTRIL [Suspect]
     Indication: ANTIEMETIC SUPPORTIVE CARE
     Route: 065
  3. DOXIL [Suspect]
     Indication: BREAST CANCER METASTATIC
     Route: 042
  4. DOXIL [Suspect]
     Dosage: FIRST DOSE
     Route: 042

REACTIONS (3)
  - ANAPHYLACTIC SHOCK [None]
  - INFUSION RELATED REACTION [None]
  - CONVULSION [None]
